FAERS Safety Report 15707868 (Version 17)
Quarter: 2020Q3

REPORT INFORMATION
  Report Type: Other
  Country: DE (occurrence: DE)
  Receive Date: 20181211
  Receipt Date: 20200826
  Transmission Date: 20201102
  Serious: Yes (Hospitalization)
  Sender: FDA-Public Use
  Company Number: DE-ROCHE-2173418

PATIENT
  Age: 43 Year
  Sex: Male

DRUGS (10)
  1. OCREVUS [Suspect]
     Active Substance: OCRELIZUMAB
     Dosage: SECOND MAINTENANCE DOSE
     Route: 042
     Dates: start: 20190923
  2. CORTISONE [Suspect]
     Active Substance: CORTISONE
     Indication: MULTIPLE SCLEROSIS RELAPSE
     Route: 042
     Dates: start: 20180815, end: 20180817
  3. FAMPYRA [Concomitant]
     Active Substance: DALFAMPRIDINE
  4. TIZANIDINE. [Suspect]
     Active Substance: TIZANIDINE
     Indication: PRODUCT USED FOR UNKNOWN INDICATION
     Route: 065
  5. CORTISONE [Suspect]
     Active Substance: CORTISONE
     Route: 042
  6. TAMSULOSIN [Concomitant]
     Active Substance: TAMSULOSIN
  7. OCREVUS [Suspect]
     Active Substance: OCRELIZUMAB
     Dosage: SECOND INFUSION
     Route: 042
     Dates: start: 20180823
  8. OCREVUS [Suspect]
     Active Substance: OCRELIZUMAB
     Dosage: THIRD MAINTENANCE DOSE
     Route: 042
     Dates: start: 20200505
  9. OCREVUS [Suspect]
     Active Substance: OCRELIZUMAB
     Route: 042
  10. OCREVUS [Suspect]
     Active Substance: OCRELIZUMAB
     Indication: RELAPSING-REMITTING MULTIPLE SCLEROSIS
     Route: 042
     Dates: start: 20180809

REACTIONS (28)
  - Asthenia [Recovered/Resolved]
  - Nasopharyngitis [Not Recovered/Not Resolved]
  - Uhthoff^s phenomenon [Unknown]
  - Infusion site pain [Recovered/Resolved]
  - Neuritis [Unknown]
  - Axillary pain [Not Recovered/Not Resolved]
  - Alopecia [Not Recovered/Not Resolved]
  - Pain in extremity [Not Recovered/Not Resolved]
  - Lymphadenopathy [Recovered/Resolved]
  - Impaired healing [Recovered/Resolved]
  - Headache [Recovered/Resolved]
  - Anxiety [Recovered/Resolved]
  - Heart rate increased [Recovered/Resolved]
  - Burning sensation [Recovered/Resolved]
  - Fatigue [Not Recovered/Not Resolved]
  - Myosclerosis [Not Recovered/Not Resolved]
  - Erythema [Recovered/Resolved]
  - Fungal infection [Unknown]
  - Infusion related reaction [Unknown]
  - Somnolence [Unknown]
  - Multiple sclerosis [Recovered/Resolved]
  - Multiple sclerosis relapse [Recovered/Resolved]
  - Dizziness [Recovered/Resolved]
  - Nail bed inflammation [Recovering/Resolving]
  - Tachycardia [Recovered/Resolved]
  - Skin disorder [Not Recovered/Not Resolved]
  - Energy increased [Unknown]
  - Cough [Not Recovered/Not Resolved]

NARRATIVE: CASE EVENT DATE: 20180810
